FAERS Safety Report 20142873 (Version 1)
Quarter: 2021Q4

REPORT INFORMATION
  Report Type: Spontaneous
  Country: JP (occurrence: JP)
  Receive Date: 20211202
  Receipt Date: 20211202
  Transmission Date: 20220303
  Serious: Yes (Hospitalization, Other)
  Sender: FDA-Public Use
  Company Number: JP-SA-2021SA401639

PATIENT
  Sex: Male

DRUGS (2)
  1. DOCETAXEL [Suspect]
     Active Substance: DOCETAXEL
     Indication: Extramammary Paget^s disease
     Dosage: MONTHLY DOCETAXEL CHEMOTHERAPY
  2. DOCETAXEL [Suspect]
     Active Substance: DOCETAXEL
     Indication: Metastases to lymph nodes
     Dosage: 37TH COURSE OF MONTHLY DOCETAXEL

REACTIONS (8)
  - Septic shock [Recovered/Resolved]
  - Cellulitis streptococcal [Recovered/Resolved]
  - Skin warm [Recovered/Resolved]
  - Pain in extremity [Recovered/Resolved]
  - Erythema [Recovered/Resolved]
  - Disseminated intravascular coagulation [Recovered/Resolved]
  - Psoriasis [Recovered/Resolved]
  - Therapeutic response unexpected [Unknown]
